FAERS Safety Report 5193743-6 (Version None)
Quarter: 2006Q4

REPORT INFORMATION
  Report Type: 
  Country: None (occurrence: None)
  Receive Date: 20061228
  Receipt Date: 20061222
  Transmission Date: 20070319
  Serious: Yes (Hospitalization)
  Sender: FDA-Public Use
  Company Number: BR-GLAXOSMITHKLINE-A0632651A

PATIENT
  Age: 19 Year
  Sex: Female

DRUGS (1)
  1. ZYBAN [Suspect]
     Indication: SUICIDE ATTEMPT
     Dosage: 1200MG SINGLE DOSE
     Route: 048

REACTIONS (2)
  - INTENTIONAL OVERDOSE [None]
  - SUICIDE ATTEMPT [None]
